FAERS Safety Report 6290111-0 (Version None)
Quarter: 2009Q3

REPORT INFORMATION
  Report Type: 
  Country: None (occurrence: None)
  Receive Date: 20090730
  Receipt Date: 20081120
  Transmission Date: 20100115
  Serious: Yes (Hospitalization)
  Sender: FDA-Public Use
  Company Number: US-BRISTOL-MYERS SQUIBB COMPANY-14416838

PATIENT

DRUGS (3)
  1. WARFARIN SODIUM [Suspect]
  2. PLAVIX [Suspect]
  3. ASPIRIN [Suspect]

REACTIONS (2)
  - CEREBRAL HAEMORRHAGE [None]
  - PULMONARY HAEMORRHAGE [None]
